FAERS Safety Report 9285579 (Version 3)
Quarter: 2013Q3

REPORT INFORMATION
  Report Type: Report from Study
  Country: US (occurrence: US)
  Receive Date: 20130513
  Receipt Date: 20130911
  Transmission Date: 20140515
  Serious: Yes (Life-Threatening, Hospitalization)
  Sender: FDA-Public Use
  Company Number: US-009507513-1305USA002893

PATIENT
  Age: 60 Year
  Sex: Male
  Weight: 89 kg

DRUGS (12)
  1. BLINDED AZACITIDINE [Suspect]
     Indication: MYELODYSPLASTIC SYNDROME
     Dosage: UNK
     Route: 048
     Dates: start: 20130417, end: 20130423
  2. BLINDED LENALIDOMIDE [Suspect]
     Indication: MYELODYSPLASTIC SYNDROME
     Dosage: UNK
     Route: 048
     Dates: start: 20130417, end: 20130423
  3. BLINDED POST TRIAL THERAPY [Suspect]
     Indication: MYELODYSPLASTIC SYNDROME
     Dosage: UNK
     Route: 048
     Dates: start: 20130417, end: 20130423
  4. BLINDED PRE TRIAL THERAPY [Suspect]
     Indication: MYELODYSPLASTIC SYNDROME
     Dosage: UNK
     Route: 048
     Dates: start: 20130417, end: 20130423
  5. BLINDED VORINOSTAT [Suspect]
     Indication: MYELODYSPLASTIC SYNDROME
     Dosage: UNK
     Route: 048
     Dates: start: 20130417, end: 20130423
  6. BLINDED AZACITIDINE [Suspect]
     Dosage: UNK
     Route: 048
     Dates: start: 20130814, end: 20130820
  7. BLINDED LENALIDOMIDE [Suspect]
     Dosage: UNK
     Route: 048
     Dates: start: 20130814, end: 20130820
  8. BLINDED POST TRIAL THERAPY [Suspect]
     Dosage: UNK
     Route: 048
     Dates: start: 20130814, end: 20130820
  9. BLINDED PRE TRIAL THERAPY [Suspect]
     Dosage: UNK
     Route: 048
     Dates: start: 20130814, end: 20130820
  10. BLINDED VORINOSTAT [Suspect]
     Dosage: UNK
     Route: 048
     Dates: start: 20130814, end: 20130820
  11. AZACITIDINE [Suspect]
     Indication: MYELODYSPLASTIC SYNDROME
     Dosage: UNK
     Dates: start: 20130415
  12. AZACITIDINE [Suspect]
     Dosage: UNK
     Dates: start: 20130812

REACTIONS (4)
  - Blood bilirubin increased [Recovering/Resolving]
  - Small intestinal haemorrhage [Recovering/Resolving]
  - Sepsis [Recovering/Resolving]
  - Abdominal pain [Recovered/Resolved]
